FAERS Safety Report 6682984-4 (Version None)
Quarter: 2010Q2

REPORT INFORMATION
  Report Type: 
  Country: None (occurrence: None)
  Receive Date: 20100413
  Receipt Date: 20100329
  Transmission Date: 20101027
  Serious: Yes (Death, Other)
  Sender: FDA-Public Use
  Company Number: 2010001112

PATIENT
  Age: 82 Year
  Sex: Female
  Weight: 41.2 kg

DRUGS (10)
  1. ERLOTINIB (ERLOTINIB HCL) (TABLET)(ERLOTINIB [Suspect]
     Indication: LUNG ADENOCARCINOMA
     Dosage: (150 MG,QD), ORAL
     Route: 048
     Dates: start: 20090617, end: 20090904
  2. ASPIRIN [Suspect]
     Indication: ANGINA PECTORIS
     Dosage: (100 MG, QD), ORAL
     Route: 048
     Dates: end: 20090901
  3. . [Suspect]
  4. WARFARIN SODIUM [Suspect]
     Indication: DRUG USE FOR UNKNOWN INDICATION
     Dosage: (0.5 MG, QD), ORAL
     Route: 048
     Dates: start: 20090101, end: 20090901
  5. NITROL [Concomitant]
  6. GASTROM (ECABET MONOSODIUM) [Concomitant]
  7. CARVEDILOL [Concomitant]
  8. DIGOXIN [Concomitant]
  9. RISEDRONIC ACID (RISEDRONIC ACID) [Concomitant]
  10. KETOPROFEN [Concomitant]

REACTIONS (1)
  - SEBORRHOEIC DERMATITIS [None]
